FAERS Safety Report 4789833-X (Version None)
Quarter: 2005Q4

REPORT INFORMATION
  Report Type: 
  Country: None (occurrence: None)
  Receive Date: 20051006
  Receipt Date: 20050926
  Transmission Date: 20060501
  Serious: Yes (Hospitalization)
  Sender: FDA-Public Use
  Company Number: 200512751JP

PATIENT
  Age: 60 Year
  Sex: Male
  Weight: 71 kg

DRUGS (2)
  1. RILUTEK [Suspect]
     Route: 048
     Dates: start: 20050802, end: 20050907
  2. CYANOCOBALAMIN [Concomitant]

REACTIONS (3)
  - HEPATIC FUNCTION ABNORMAL [None]
  - INTERSTITIAL LUNG DISEASE [None]
  - MYALGIA [None]
